FAERS Safety Report 13454080 (Version 1)
Quarter: 2017Q2

REPORT INFORMATION
  Report Type: Spontaneous
  Country: US (occurrence: US)
  Receive Date: 20170418
  Receipt Date: 20170418
  Transmission Date: 20170830
  Serious: No
  Sender: FDA-Public Use
  Company Number: US-ALLERGAN-1673170US

PATIENT
  Age: 36 Year
  Sex: Female

DRUGS (3)
  1. LATISSE [Suspect]
     Active Substance: BIMATOPROST
     Indication: GROWTH OF EYELASHES
     Dosage: 2 GTT, UNK
     Route: 061
     Dates: start: 201605
  2. FISH OIL [Concomitant]
     Active Substance: FISH OIL
     Indication: PRODUCT USED FOR UNKNOWN INDICATION
     Dosage: UNK
     Route: 048
  3. VISINE                             /00256502/ [Concomitant]
     Indication: PRODUCT USED FOR UNKNOWN INDICATION

REACTIONS (4)
  - Eyelid skin dryness [Not Recovered/Not Resolved]
  - Madarosis [Recovered/Resolved]
  - Inappropriate schedule of drug administration [Unknown]
  - Erythema of eyelid [Recovering/Resolving]

NARRATIVE: CASE EVENT DATE: 201605
